FAERS Safety Report 6990512-9 (Version None)
Quarter: 2010Q3

REPORT INFORMATION
  Report Type: 
  Country: None (occurrence: None)
  Receive Date: 20100916
  Receipt Date: 20100628
  Transmission Date: 20110219
  Serious: Yes (Other)
  Sender: FDA-Public Use
  Company Number: US-PFIZER INC-2010081205

PATIENT
  Sex: Male
  Weight: 78.9 kg

DRUGS (3)
  1. LYRICA [Suspect]
     Indication: NEURALGIA
     Dosage: 300 MG, 2X/DAY
     Route: 048
     Dates: start: 20100101
  2. AMLODIPINE/VALSARTAN [Concomitant]
     Indication: HYPERTENSION
     Dosage: UNK
  3. KLONOPIN [Concomitant]
     Dosage: 1 MG, AT NIGHT

REACTIONS (6)
  - FEELING JITTERY [None]
  - FLUID RETENTION [None]
  - MUSCULOSKELETAL STIFFNESS [None]
  - POLYURIA [None]
  - WEIGHT DECREASED [None]
  - WEIGHT INCREASED [None]
